FAERS Safety Report 8190322-3 (Version None)
Quarter: 2012Q1

REPORT INFORMATION
  Report Type: 
  Country: None (occurrence: None)
  Receive Date: 20120221
  Receipt Date: 20120105
  Transmission Date: 20120608
  Serious: No
  Sender: FDA-Public Use
  Company Number: 1000026735

PATIENT
  Age: 59 Year
  Sex: Male

DRUGS (5)
  1. KLONOPIN [Concomitant]
  2. BUSPAR(BUSPIRONE HYDROCHLORIDE)(BUSPIRONE HYDROCHLORIDE) [Concomitant]
  3. PAXIL [Concomitant]
  4. VIIBRYD [Suspect]
     Indication: DEPRESSION
     Dosage: 10 MG (10 MG,1 IN 1 D),ORAL,  5 MG (5 MG,1 IN 1 D),ORAL
     Route: 048
     Dates: start: 20111223, end: 20111224
  5. VIIBRYD [Suspect]
     Indication: DEPRESSION
     Dosage: 10 MG (10 MG,1 IN 1 D),ORAL,  5 MG (5 MG,1 IN 1 D),ORAL
     Route: 048
     Dates: start: 20111226, end: 20111227

REACTIONS (7)
  - INSOMNIA [None]
  - IRRITABILITY [None]
  - GASTROINTESTINAL HYPOMOTILITY [None]
  - EYE PAIN [None]
  - TINNITUS [None]
  - SOMNOLENCE [None]
  - VERTIGO [None]
